FAERS Safety Report 10470955 (Version 2)
Quarter: 2014Q4

REPORT INFORMATION
  Report Type: Spontaneous
  Country: CH (occurrence: CH)
  Receive Date: 20140923
  Receipt Date: 20141010
  Transmission Date: 20150528
  Serious: Yes (Other)
  Sender: FDA-Public Use
  Company Number: PHHY2014CH118378

PATIENT
  Age: 62 Year
  Sex: Female

DRUGS (1)
  1. FEMARA [Suspect]
     Active Substance: LETROZOLE
     Indication: BREAST CANCER
     Dosage: 2.5 MG PER DAY
     Route: 065
     Dates: start: 201206

REACTIONS (9)
  - Osteoporosis [Not Recovered/Not Resolved]
  - Osteonecrosis [Not Recovered/Not Resolved]
  - Osteochondrosis [Unknown]
  - Arthralgia [Not Recovered/Not Resolved]
  - Spinal osteoarthritis [Unknown]
  - Scoliosis [Unknown]
  - Pain in extremity [Unknown]
  - Groin pain [Unknown]
  - Bone marrow oedema [Unknown]

NARRATIVE: CASE EVENT DATE: 201307
